FAERS Safety Report 9014600 (Version 1)
Quarter: 2013Q1

REPORT INFORMATION
  Report Type: Spontaneous
  Country: US (occurrence: US)
  Receive Date: 20130115
  Receipt Date: 20130115
  Transmission Date: 20140127
  Serious: No
  Sender: FDA-Public Use
  Company Number: US-NOVEN-12US005835

PATIENT
  Sex: Male

DRUGS (2)
  1. FENTANYL [Suspect]
     Indication: PAIN
     Dosage: 25 UG/HR, Q 3DAYS
     Route: 062
     Dates: start: 201211
  2. OXYCODONE [Concomitant]
     Indication: BREAKTHROUGH PAIN
     Dosage: 10 MG, BID
     Route: 048

REACTIONS (2)
  - Inadequate analgesia [Recovered/Resolved]
  - Product quality issue [Recovered/Resolved]
